FAERS Safety Report 6043696-3 (Version None)
Quarter: 2009Q1

REPORT INFORMATION
  Report Type: 
  Country: None (occurrence: None)
  Receive Date: 20090120
  Receipt Date: 20090113
  Transmission Date: 20090719
  Serious: Yes (Death)
  Sender: FDA-Public Use
  Company Number: US-BRISTOL-MYERS SQUIBB COMPANY-14470611

PATIENT
  Age: 59 Year
  Sex: Male

DRUGS (7)
  1. ATENOLOL [Suspect]
     Route: 048
  2. NALTREXONE [Suspect]
     Route: 048
  3. TRAZODONE HCL [Suspect]
     Route: 048
  4. DESIPRAMINE HCL [Suspect]
     Route: 048
  5. SALSALATE [Suspect]
     Route: 048
  6. LEVOTHYROXINE SODIUM [Suspect]
     Route: 048
  7. ETHANOL [Suspect]
     Route: 048

REACTIONS (1)
  - COMPLETED SUICIDE [None]
